FAERS Safety Report 7542295 (Version 5)
Quarter: 2012Q4

REPORT INFORMATION
  Report Type: 
  Country: JP (occurrence: JP)
  Receive Date: 20100816
  Receipt Date: 20121111
  Transmission Date: 20130627
  Serious: Yes (Other)
  Sender: FDA-Public Use
  Company Number: PHHY2010JP51545

PATIENT
  Age: 60 Year
  Sex: Male

DRUGS (13)
  1. AFINITOR [Suspect]
     Indication: METASTATIC RENAL CELL CARCINOMA
     Dosage: 10 mg
     Route: 048
     Dates: start: 20100626, end: 20100710
  2. AFINITOR [Suspect]
     Dosage: 10 mg, daily
     Route: 048
     Dates: start: 20100717
  3. SORAFENIB TOSILATE [Concomitant]
     Dosage: 800 mg, UNK
     Route: 048
     Dates: start: 20091103, end: 20100624
  4. FLIVAS [Concomitant]
     Dosage: 50 mg, UNK
     Route: 048
     Dates: start: 20091204
  5. OLMETEC [Concomitant]
     Indication: HYPERTENSION
     Dosage: 20 mg, UNK
     Route: 048
     Dates: start: 20091204
  6. OLMETEC [Concomitant]
     Indication: PROPHYLAXIS
     Dosage: 20 mg, UNK
     Route: 048
  7. NIFEDIPINE [Concomitant]
     Indication: HYPERTENSION
     Dosage: 40 mg, UNK
     Route: 048
     Dates: start: 20091204
  8. RIBALL [Concomitant]
     Indication: PROPHYLAXIS
     Dosage: 40 mg, UNK
     Route: 048
     Dates: start: 20091204
  9. LOCHOL [Concomitant]
     Indication: HYPERLIPIDAEMIA
     Dosage: 30 mg, UNK
     Route: 048
     Dates: start: 20091204
  10. FAMOTIDINE [Concomitant]
     Indication: PROPHYLAXIS
     Dosage: 40 mg, UNK
     Route: 048
  11. AZUNOL [Concomitant]
     Indication: PROPHYLAXIS
  12. AFTACH [Concomitant]
     Indication: PROPHYLAXIS
  13. DESPA KOWA [Concomitant]
     Indication: PROPHYLAXIS

REACTIONS (4)
  - Hepatic function abnormal [Recovering/Resolving]
  - Gamma-glutamyltransferase increased [Unknown]
  - Cough [Unknown]
  - Dyspnoea [Unknown]
